FAERS Safety Report 21119594 (Version 1)
Quarter: 2022Q3

REPORT INFORMATION
  Report Type: Spontaneous
  Country: US (occurrence: None)
  Receive Date: 20220721
  Receipt Date: 20220721
  Transmission Date: 20221027
  Serious: Yes (Death)
  Sender: FDA-Public Use
  Company Number: None

PATIENT
  Age: 63 Year
  Sex: Male

DRUGS (4)
  1. BIKTARVY [Suspect]
     Active Substance: BICTEGRAVIR SODIUM\EMTRICITABINE\TENOFOVIR ALAFENAMIDE FUMARATE
     Indication: HIV infection
     Dosage: FREQUENCY : DAILY;?
     Route: 048
  2. ATORVASTATIN [Concomitant]
     Active Substance: ATORVASTATIN
  3. METOPROLOL [Concomitant]
     Active Substance: METOPROLOL
  4. VALSARTAN [Concomitant]
     Active Substance: VALSARTAN

REACTIONS (5)
  - Refusal of treatment by patient [None]
  - Intentional product use issue [None]
  - Dyspnoea [None]
  - Dyspnoea [None]
  - Cognitive disorder [None]

NARRATIVE: CASE EVENT DATE: 20220721
